FAERS Safety Report 6182532-1 (Version None)
Quarter: 2009Q2

REPORT INFORMATION
  Report Type: 
  Country: None (occurrence: None)
  Receive Date: 20090507
  Receipt Date: 20090430
  Transmission Date: 20091009
  Serious: Yes (Life-Threatening, Hospitalization)
  Sender: FDA-Public Use
  Company Number: IE-CELGENEUS-229-C5013-07120614

PATIENT
  Sex: Female
  Weight: 56.1 kg

DRUGS (18)
  1. CC-5013 [Suspect]
     Indication: MULTIPLE MYELOMA
     Route: 048
     Dates: start: 20070628, end: 20071015
  2. CC-5013 [Suspect]
     Route: 048
     Dates: start: 20071105, end: 20071201
  3. CC-5013 [Suspect]
     Route: 048
     Dates: start: 20071203
  4. DEXAMETHASONE 4MG TAB [Suspect]
     Indication: MULTIPLE MYELOMA
     Route: 048
     Dates: start: 20070628, end: 20071203
  5. NEUPOGEN [Concomitant]
     Indication: DRUG USE FOR UNKNOWN INDICATION
     Route: 065
     Dates: end: 20071201
  6. VANCOMYCIN HCL [Concomitant]
     Indication: METHICILLIN-RESISTANT STAPHYLOCOCCAL AUREUS TEST
     Route: 051
     Dates: start: 20071213, end: 20080110
  7. NEORECORMIN [Concomitant]
     Route: 058
     Dates: start: 20071219
  8. ENOXAPARIN SODIUM [Concomitant]
     Indication: THROMBOSIS PROPHYLAXIS
     Route: 058
     Dates: start: 20071209
  9. METOPROLOL [Concomitant]
     Indication: ATRIAL FIBRILLATION
     Route: 048
     Dates: end: 20080110
  10. METOPROLOL [Concomitant]
     Route: 048
  11. SANDOZ K [Concomitant]
     Dosage: 25 MMOL
     Route: 048
     Dates: start: 20071228, end: 20080107
  12. VALACYCLOVIR [Concomitant]
     Route: 048
     Dates: start: 20071229
  13. DIFLUCAN [Concomitant]
     Route: 048
     Dates: start: 20080102, end: 20080103
  14. DIFLUCAN [Concomitant]
     Route: 051
     Dates: start: 20071228
  15. DIFLUCAN [Concomitant]
     Route: 048
     Dates: start: 20080103
  16. ASCORBIC ACID [Concomitant]
     Indication: DRUG USE FOR UNKNOWN INDICATION
     Route: 048
     Dates: start: 20080102
  17. BACTROBAN [Concomitant]
     Indication: DRUG USE FOR UNKNOWN INDICATION
     Route: 061
     Dates: start: 20080103
  18. ASPIRIN [Concomitant]
     Indication: DRUG USE FOR UNKNOWN INDICATION
     Route: 048
     Dates: start: 20070928, end: 20071208

REACTIONS (5)
  - ATRIAL FIBRILLATION [None]
  - HYPERTHYROIDISM [None]
  - NEUTROPENIC SEPSIS [None]
  - PNEUMONIA [None]
  - RENAL FAILURE ACUTE [None]
